FAERS Safety Report 12169215 (Version 1)
Quarter: 2016Q1

REPORT INFORMATION
  Report Type: Report from Study
  Country: US (occurrence: US)
  Receive Date: 20160310
  Receipt Date: 20160310
  Transmission Date: 20160526
  Serious: Yes (Other)
  Sender: FDA-Public Use
  Company Number: US-ABBVIE-16K-163-1573796-00

PATIENT
  Age: 18 Year
  Sex: Male

DRUGS (3)
  1. HUMIRA [Suspect]
     Active Substance: ADALIMUMAB
     Indication: PRODUCT USED FOR UNKNOWN INDICATION
     Route: 058
  2. HUMIRA [Suspect]
     Active Substance: ADALIMUMAB
     Route: 058
     Dates: start: 201507
  3. HUMIRA [Suspect]
     Active Substance: ADALIMUMAB
     Route: 058
     Dates: start: 201602

REACTIONS (9)
  - Pallor [Unknown]
  - Headache [Unknown]
  - Nasal polyps [Unknown]
  - Respiratory disorder [Unknown]
  - Drug effect incomplete [Unknown]
  - Wrong technique in product usage process [Unknown]
  - Seasonal allergy [Unknown]
  - Incorrect dose administered [Unknown]
  - Intestinal resection [Unknown]

NARRATIVE: CASE EVENT DATE: 2015
